FAERS Safety Report 6916908-9 (Version None)
Quarter: 2010Q3

REPORT INFORMATION
  Report Type: 
  Country: None (occurrence: None)
  Receive Date: 20100809
  Receipt Date: 20100809
  Transmission Date: 20110219
  Serious: Yes (Hospitalization)
  Sender: FDA-Public Use
  Company Number: None

PATIENT
  Age: 67 Year
  Sex: Male

DRUGS (2)
  1. CLOPIDOGREL [Suspect]
     Dosage: 75 MG EVERY DAY PO
     Route: 048
     Dates: start: 20091006
  2. MODAFINIL [Suspect]
     Dosage: 200 MG AM PO
     Route: 048
     Dates: start: 20080225, end: 20100805

REACTIONS (5)
  - CHEST PAIN [None]
  - DIZZINESS [None]
  - DRUG EFFECT DECREASED [None]
  - DRUG INTERACTION [None]
  - HEADACHE [None]
